FAERS Safety Report 6562626-9 (Version None)
Quarter: 2010Q1

REPORT INFORMATION
  Report Type: 
  Country: None (occurrence: None)
  Receive Date: 20100130
  Receipt Date: 20091119
  Transmission Date: 20100710
  Serious: No
  Sender: FDA-Public Use
  Company Number: US-ABBOTT-09P-163-0609686-00

PATIENT
  Sex: Female
  Weight: 65.83 kg

DRUGS (1)
  1. HUMIRA [Suspect]
     Indication: RHEUMATOID ARTHRITIS
     Dates: start: 20080620, end: 20091028

REACTIONS (5)
  - EYE PAIN [None]
  - EYE SWELLING [None]
  - HERPES ZOSTER [None]
  - PHOTOPHOBIA [None]
  - VISUAL ACUITY REDUCED [None]
